FAERS Safety Report 8059884 (Version 6)
Quarter: 2012Q4

REPORT INFORMATION
  Report Type: 
  Country: US (occurrence: US)
  Receive Date: 20110729
  Receipt Date: 20121219
  Transmission Date: 20130627
  Serious: Yes (Hospitalization)
  Sender: FDA-Public Use
  Company Number: US-BIOGENIDEC-2011BI027214

PATIENT
  Age: 58 Year
  Sex: Female

DRUGS (2)
  1. AVONEX [Suspect]
     Indication: MULTIPLE SCLEROSIS
     Route: 030
  2. AVONEX [Suspect]
     Indication: MULTIPLE SCLEROSIS
     Route: 030
     Dates: start: 20100813

REACTIONS (10)
  - Haematoma [Recovered/Resolved]
  - Contusion [Recovered/Resolved]
  - Cellulitis staphylococcal [Recovered/Resolved]
  - Deep vein thrombosis [Not Recovered/Not Resolved]
  - Haemorrhoids [Unknown]
  - Blood iron decreased [Not Recovered/Not Resolved]
  - International normalised ratio increased [Unknown]
  - Asthenia [Not Recovered/Not Resolved]
  - Fatigue [Not Recovered/Not Resolved]
  - Dyspnoea [Not Recovered/Not Resolved]
